FAERS Safety Report 12729264 (Version 2)
Quarter: 2016Q4

REPORT INFORMATION
  Report Type: Report from Study
  Country: FR (occurrence: FR)
  Receive Date: 20160909
  Receipt Date: 20161018
  Transmission Date: 20170207
  Serious: Yes (Death)
  Sender: FDA-Public Use
  Company Number: FR-PFIZER INC-2016421638

PATIENT
  Age: 67 Year
  Sex: Male
  Weight: 83 kg

DRUGS (14)
  1. SOLU-MEDROL [Concomitant]
     Active Substance: METHYLPREDNISOLONE SODIUM SUCCINATE
     Dosage: 80 MG, 2X/DAY
     Route: 042
     Dates: start: 20141223, end: 20141227
  2. SPECIAFOLDINE [Concomitant]
     Active Substance: FOLIC ACID
  3. NEORAL [Concomitant]
     Active Substance: CYCLOSPORINE
  4. AMLOR [Concomitant]
     Active Substance: AMLODIPINE BESYLATE
  5. ATGAM [Suspect]
     Active Substance: EQUINE THYMOCYTE IMMUNE GLOBULIN
     Indication: APLASTIC ANAEMIA
     Dosage: 40 MG/KG, DAILY
     Route: 042
     Dates: start: 20141223, end: 20141225
  6. ATGAM [Suspect]
     Active Substance: EQUINE THYMOCYTE IMMUNE GLOBULIN
     Dosage: UNK
     Dates: start: 201412, end: 20141228
  7. SERESTA [Concomitant]
     Active Substance: OXAZEPAM
  8. POLARAMINE [Concomitant]
     Active Substance: DEXCHLORPHENIRAMINE MALEATE
     Dosage: UNK
     Dates: start: 20141223
  9. BACTRIM [Concomitant]
     Active Substance: SULFAMETHOXAZOLE\TRIMETHOPRIM
  10. CICLOSPORIN [Concomitant]
     Active Substance: CYCLOSPORINE
     Dosage: 240 MG, DAILY
     Route: 042
  11. ZELITREX [Concomitant]
     Active Substance: VALACYCLOVIR HYDROCHLORIDE
  12. REVOLADE [Concomitant]
     Active Substance: ELTROMBOPAG
  13. INEXIUM [Concomitant]
     Active Substance: ESOMEPRAZOLE
  14. SOLUDECADRON [Concomitant]
     Active Substance: DEXAMETHASONE SODIUM PHOSPHATE
     Dosage: 1 MG, DAILY (1 DF (VIAL))
     Dates: start: 20141223

REACTIONS (3)
  - Acute respiratory distress syndrome [Fatal]
  - Haemoptysis [Recovered/Resolved]
  - Pneumocystis jirovecii pneumonia [Fatal]

NARRATIVE: CASE EVENT DATE: 20141224
